FAERS Safety Report 18821987 (Version 2)
Quarter: 2021Q1

REPORT INFORMATION
  Report Type: Spontaneous
  Country: US (occurrence: US)
  Receive Date: 20210202
  Receipt Date: 20210323
  Transmission Date: 20210419
  Serious: No
  Sender: FDA-Public Use
  Company Number: US-PFIZER INC-2020065006

PATIENT
  Age: 61 Year
  Sex: Male

DRUGS (1)
  1. LYRICA [Suspect]
     Active Substance: PREGABALIN
     Dosage: 75 MG

REACTIONS (3)
  - Peripheral swelling [Unknown]
  - Memory impairment [Unknown]
  - Pain [Unknown]
